FAERS Safety Report 23008015 (Version 2)
Quarter: 2023Q4

REPORT INFORMATION
  Report Type: Spontaneous
  Country: PK (occurrence: PK)
  Receive Date: 20230929
  Receipt Date: 20231010
  Transmission Date: 20240110
  Serious: Yes (Other)
  Sender: FDA-Public Use
  Company Number: PK-PFIZER INC-PV202300160736

PATIENT
  Age: 40 Year
  Sex: Male

DRUGS (8)
  1. ENBREL [Suspect]
     Active Substance: ETANERCEPT
     Indication: Ankylosing spondylitis
     Dosage: UNK
     Route: 065
     Dates: start: 2016
  2. ENBREL [Suspect]
     Active Substance: ETANERCEPT
     Dosage: 50 MG, EVERY TWO WEEKS
     Route: 058
  3. ENBREL [Suspect]
     Active Substance: ETANERCEPT
     Dosage: 25 MG, WEEKLY
     Route: 065
  4. PIROXICAM BETADEX [Concomitant]
     Active Substance: PIROXICAM BETADEX
     Indication: Pain
     Dosage: 1 DF, 1X/DAY(0+0+1+0 AFTER MEAL, 1 TAB IN EVENING, AFTER MEAL THEN AS PER NEED AND THEN AS NEED FOR
  5. RISEK INSTA [Concomitant]
     Indication: Abdominal discomfort
     Dosage: 1 DF, 1X/DAY (1+0+0+0, 1 CAP IN MORNING BEFORE MEAL AS PER NEED FOR STOMACH DISCOMFORT)
  6. Sunny d [Concomitant]
     Dosage: 1 X CAPSULES, ONCE IN TWO MONTHS, AFTER MEAL, CONTINUE
  7. DICLOFENAC SODIUM [Concomitant]
     Active Substance: DICLOFENAC\DICLOFENAC SODIUM
     Dosage: APPLY LOCALLY, THREE TIMES A DAY CONTINUE
  8. BIOFREEZ [Concomitant]
     Indication: Pain
     Dosage: APPLY LOCALLY, ONCE A DAY CONTINUE AT NIGHT TIME

REACTIONS (6)
  - Varicose vein [Unknown]
  - Musculoskeletal stiffness [Unknown]
  - Tenosynovitis [Unknown]
  - Tendonitis [Unknown]
  - Arthralgia [Unknown]
  - Off label use [Unknown]

NARRATIVE: CASE EVENT DATE: 20160101
